FAERS Safety Report 9627764 (Version 2)
Quarter: 2013Q4

REPORT INFORMATION
  Report Type: Not Available
  Country: US (occurrence: US)
  Receive Date: 20131016
  Receipt Date: 20131016
  Transmission Date: 20140711
  Serious: Yes (Hospitalization)
  Sender: FDA-Public Use
  Company Number: US-LUNDBECK-DKLU1092076

PATIENT
  Age: 17 Year
  Sex: Female

DRUGS (8)
  1. SABRIL (TABLET) [Suspect]
     Indication: EPILEPSY
     Route: 048
     Dates: start: 20120810
  2. SABRIL (TABLET) [Suspect]
     Indication: COMPLEX PARTIAL SEIZURES
  3. SABRIL (TABLET) [Suspect]
     Indication: EPILEPSY
  4. KEPPRA [Concomitant]
     Indication: PRODUCT USED FOR UNKNOWN INDICATION
  5. TOPAMAX [Concomitant]
     Indication: PRODUCT USED FOR UNKNOWN INDICATION
  6. PHENOBARBITAL [Concomitant]
     Indication: PRODUCT USED FOR UNKNOWN INDICATION
  7. BANZEL [Concomitant]
     Indication: PRODUCT USED FOR UNKNOWN INDICATION
  8. LAMICTAL [Concomitant]
     Indication: PRODUCT USED FOR UNKNOWN INDICATION

REACTIONS (1)
  - Convulsion [Unknown]
